FAERS Safety Report 4845338-9 (Version None)
Quarter: 2005Q4

REPORT INFORMATION
  Report Type: 
  Country: None (occurrence: None)
  Receive Date: 20051205
  Receipt Date: 20051122
  Transmission Date: 20060501
  Serious: Yes (Other)
  Sender: FDA-Public Use
  Company Number: FR-GLAXOSMITHKLINE-B0402241A

PATIENT

DRUGS (2)
  1. LAMICTAL [Suspect]
     Indication: EPILEPSY
     Dosage: 200MG PER DAY
  2. EPITOMAX [Suspect]
     Indication: EPILEPSY
     Dosage: 300MG PER DAY

REACTIONS (7)
  - AGITATION [None]
  - DRUG EXPOSURE DURING PREGNANCY [None]
  - DRUG WITHDRAWAL SYNDROME NEONATAL [None]
  - EPILEPSY [None]
  - NEONATAL DISORDER [None]
  - OXYGEN SATURATION DECREASED [None]
  - PULMONARY HYPERTENSION [None]
